FAERS Safety Report 11718776 (Version 1)
Quarter: 2015Q4

REPORT INFORMATION
  Report Type: Spontaneous
  Country: VE (occurrence: VE)
  Receive Date: 20151109
  Receipt Date: 20151109
  Transmission Date: 20160304
  Serious: Yes (Other)
  Sender: FDA-Public Use
  Company Number: PHHY2014VE033803

PATIENT
  Age: 59 Year
  Sex: Female

DRUGS (5)
  1. SERETIDE [Concomitant]
     Active Substance: FLUTICASONE FUROATE\SALMETEROL XINAFOATE
     Indication: ASTHMA
     Dosage: 500 MG, UNK
     Route: 065
  2. DIOVAN [Suspect]
     Active Substance: VALSARTAN
     Indication: HYPERTENSION
     Dosage: 160 MG, QD
     Route: 048
  3. DIOVAN [Suspect]
     Active Substance: VALSARTAN
     Dosage: 4 DF (TABLET OF 80 MG), UNK
     Route: 065
     Dates: start: 20151104
  4. DIOVAN HCT [Suspect]
     Active Substance: HYDROCHLOROTHIAZIDE\VALSARTAN
     Indication: HYPERTENSION
     Dosage: 320/12.5 MG, QD
     Route: 048
  5. BERODUAL [Concomitant]
     Active Substance: FENOTEROL HYDROBROMIDE\IPRATROPIUM BROMIDE
     Indication: ASTHMA
     Route: 065

REACTIONS (10)
  - Depression [Unknown]
  - Wrong drug administered [Unknown]
  - Emotional disorder [Unknown]
  - Eye pain [Unknown]
  - Feeling abnormal [Unknown]
  - Blood pressure increased [Recovered/Resolved]
  - Headache [Unknown]
  - Aneurysm [Unknown]
  - Ophthalmoplegia [Unknown]
  - Blood cholesterol increased [Recovered/Resolved]

NARRATIVE: CASE EVENT DATE: 201312
